FAERS Safety Report 5673810-0 (Version None)
Quarter: 2008Q2

REPORT INFORMATION
  Report Type: 
  Country: None (occurrence: None)
  Receive Date: 20080226
  Receipt Date: 20070618
  Transmission Date: 20081010
  Serious: Yes (Other)
  Sender: FDA-Public Use
  Company Number: 503111

PATIENT
  Age: 20 Year
  Sex: Male
  Weight: 86.2 kg

DRUGS (7)
  1. ACCUTANE [Suspect]
     Indication: ACNE
     Dosage: 40 MG  2 PER DAY  ORAL
     Route: 048
     Dates: start: 19880615, end: 19971014
  2. BENZAMYCIN GEL (BENZOYL PEROXIDE/ERYTHROMYCIN) [Concomitant]
  3. DIFFERIN GEL (ADAPALENE) [Concomitant]
  4. DYNACIN (MINOCYCLINE) [Concomitant]
  5. NUTRADERM (*DERMATOLOGICAL AGENT NOS/*LIQUID PARAFFIN) [Concomitant]
  6. BLISTEX (ALLANTOIN/AMINOBENZOIC ACID/CAMPHOR/MENTHOL/OXYBENZONE/PHENOL [Concomitant]
  7. RIFAMPIN [Concomitant]

REACTIONS (8)
  - ADVERSE EVENT [None]
  - CHEILITIS [None]
  - COLITIS [None]
  - COLITIS ULCERATIVE [None]
  - CROHN'S DISEASE [None]
  - DRY SKIN [None]
  - INFLAMMATORY BOWEL DISEASE [None]
  - LIP DRY [None]
